FAERS Safety Report 5270115-7 (Version None)
Quarter: 2007Q1

REPORT INFORMATION
  Report Type: 
  Country: None (occurrence: None)
  Receive Date: 20070320
  Receipt Date: 20070315
  Transmission Date: 20070707
  Serious: Yes (Hospitalization)
  Sender: FDA-Public Use
  Company Number: HQWYE927707OCT05

PATIENT
  Sex: Female

DRUGS (1)
  1. CORDARONE [Suspect]
     Indication: ATRIAL FIBRILLATION
     Dosage: 200 MG TABLET, DOSE AND FREQUENCY UNKNOWN
     Route: 048
     Dates: start: 20050428, end: 20050829

REACTIONS (5)
  - AGEUSIA [None]
  - ALOPECIA [None]
  - DIZZINESS [None]
  - HYPERTHYROIDISM [None]
  - MUSCLE CONTRACTIONS INVOLUNTARY [None]
